FAERS Safety Report 6175460-9 (Version None)
Quarter: 2009Q2

REPORT INFORMATION
  Report Type: 
  Country: None (occurrence: None)
  Receive Date: 20090429
  Receipt Date: 20090421
  Transmission Date: 20091009
  Serious: Yes (Death)
  Sender: FDA-Public Use
  Company Number: THQ2008A02054

PATIENT
  Age: 58 Year
  Sex: Female

DRUGS (14)
  1. LANSOPRAZOLE [Suspect]
     Indication: GASTRIC ULCER
     Dosage: 30 MG (30 MG, 1 IN 1 D) PER ORAL
     Route: 048
     Dates: start: 20070306, end: 20070322
  2. LANSOPRAZOLE [Suspect]
     Indication: GOUTY ARTHRITIS
     Dosage: 30 MG (30 MG, 1 IN 1 D) PER ORAL
     Route: 048
     Dates: start: 20070306, end: 20070322
  3. LANSOPRAZOLE [Suspect]
     Indication: ISCHAEMIC STROKE
     Dosage: 30 MG (30 MG, 1 IN 1 D) PER ORAL
     Route: 048
     Dates: start: 20070306, end: 20070322
  4. LANSOPRAZOLE [Suspect]
     Indication: UPPER GASTROINTESTINAL HAEMORRHAGE
     Dosage: 30 MG (30 MG, 1 IN 1 D) PER ORAL
     Route: 048
     Dates: start: 20070306, end: 20070322
  5. CELECOXIB [Concomitant]
  6. CLOPIDOGREL [Concomitant]
  7. INDAPAMIDE [Concomitant]
  8. FELODIPINE [Concomitant]
  9. FOSINOPRIL SODIUM [Concomitant]
  10. ASPIRIN [Concomitant]
  11. CARBIMAZOLE [Concomitant]
  12. COLCHINE [Concomitant]
  13. BENZBROMARONE [Concomitant]
  14. ALLOPURINOL [Concomitant]

REACTIONS (15)
  - ACUTE MYOCARDIAL INFARCTION [None]
  - BACTERIAL INFECTION [None]
  - COAGULOPATHY [None]
  - ELECTROLYTE IMBALANCE [None]
  - GASTRIC ULCER [None]
  - GOUTY ARTHRITIS [None]
  - HAEMODIALYSIS [None]
  - HYPERKALAEMIA [None]
  - PNEUMONIA [None]
  - RENAL IMPAIRMENT [None]
  - RESPIRATORY FAILURE [None]
  - SEPTIC SHOCK [None]
  - STEVENS-JOHNSON SYNDROME [None]
  - URINARY TRACT INFLAMMATION [None]
  - VENTRICULAR HYPOKINESIA [None]
